FAERS Safety Report 22607076 (Version 1)
Quarter: 2023Q2

REPORT INFORMATION
  Report Type: Other
  Country: None (occurrence: CO)
  Receive Date: 20230615
  Receipt Date: 20230615
  Transmission Date: 20230722
  Serious: Yes (Other)
  Sender: FDA-Public Use
  Company Number: CO-VistaPharm, Inc.-2142762

PATIENT
  Age: 11 Year
  Sex: Male

DRUGS (5)
  1. MYCOPHENOLATE MOFETIL [Suspect]
     Active Substance: MYCOPHENOLATE MOFETIL
     Indication: Immunosuppression
  2. DEVICE [Suspect]
     Active Substance: DEVICE
  3. TACROLIMUS [Concomitant]
     Active Substance: TACROLIMUS
  4. PREDNISOLONE [Concomitant]
     Active Substance: PREDNISOLONE
  5. CALCIUM [Concomitant]
     Active Substance: CALCIUM

REACTIONS (1)
  - Eosinophilic colitis [Recovered/Resolved]
